FAERS Safety Report 17115234 (Version 1)
Quarter: 2019Q4

REPORT INFORMATION
  Report Type: Spontaneous
  Country: US (occurrence: US)
  Receive Date: 20191204
  Receipt Date: 20191204
  Transmission Date: 20200122
  Serious: Yes (Disabling)
  Sender: FDA-Public Use
  Company Number: None

PATIENT
  Age: 69 Year
  Sex: Male
  Weight: 76.5 kg

DRUGS (8)
  1. ALBUTERAL [Concomitant]
     Active Substance: ALBUTEROL
  2. VITAMIN C [Concomitant]
     Active Substance: ASCORBIC ACID
  3. XARELTO [Suspect]
     Active Substance: RIVAROXABAN
     Indication: ATRIAL FIBRILLATION
     Dosage: ?          QUANTITY:1 TABLET(S);?
     Route: 048
     Dates: start: 20191202
  4. VIT B [Concomitant]
     Active Substance: VITAMIN B
  5. COQ10 [Concomitant]
     Active Substance: UBIDECARENONE
  6. METOPROLOL. [Concomitant]
     Active Substance: METOPROLOL
  7. FISH OIL [Concomitant]
     Active Substance: FISH OIL
  8. XARELTO [Suspect]
     Active Substance: RIVAROXABAN
     Indication: ANTICOAGULANT THERAPY
     Dosage: ?          QUANTITY:1 TABLET(S);?
     Route: 048
     Dates: start: 20191202

REACTIONS (1)
  - Blood urine present [None]

NARRATIVE: CASE EVENT DATE: 20191203
